FAERS Safety Report 23252532 (Version 2)
Quarter: 2024Q2

REPORT INFORMATION
  Report Type: Report from Study
  Country: BR (occurrence: BR)
  Receive Date: 20231201
  Receipt Date: 20240516
  Transmission Date: 20240715
  Serious: Yes (Death, Other)
  Sender: FDA-Public Use
  Company Number: BR-AstraZeneca-CH-00518917A

PATIENT
  Age: 87 Year
  Sex: Female

DRUGS (2)
  1. SOLIRIS [Suspect]
     Active Substance: ECULIZUMAB
     Indication: Paroxysmal nocturnal haemoglobinuria
     Dosage: 600 MILLIGRAM, QW
     Route: 065
     Dates: start: 20170315, end: 20170405
  2. SOLIRIS [Suspect]
     Active Substance: ECULIZUMAB
     Dosage: 900 MILLIGRAM, QW
     Route: 042
     Dates: start: 20170412

REACTIONS (2)
  - Death [Fatal]
  - Kidney infection [Unknown]
